FAERS Safety Report 18812241 (Version 2)
Quarter: 2021Q1

REPORT INFORMATION
  Report Type: Spontaneous
  Country: ES (occurrence: ES)
  Receive Date: 20210130
  Receipt Date: 20210211
  Transmission Date: 20210419
  Serious: Yes (Life-Threatening, Hospitalization, Other)
  Sender: FDA-Public Use
  Company Number: ES-MACLEODS PHARMA UK LTD-MAC2021029893

PATIENT

DRUGS (2)
  1. SILDENAFIL. [Suspect]
     Active Substance: SILDENAFIL
     Indication: ERECTILE DYSFUNCTION
     Dosage: 50 MILLIGRAM, QD, PILLS
     Route: 048
  2. SILDENAFIL. [Suspect]
     Active Substance: SILDENAFIL
     Dosage: UNK, UPTO 200 MG, PILLS (X4) IN ONE SINGLE DOSE OCCASIONALLY WITH RECREATIONAL USE
     Route: 048

REACTIONS (4)
  - Ocular discomfort [Unknown]
  - Bradyphrenia [Unknown]
  - Self-medication [Unknown]
  - Status epilepticus [Recovered/Resolved]
